FAERS Safety Report 23641594 (Version 1)
Quarter: 2024Q1

REPORT INFORMATION
  Report Type: Spontaneous
  Country: JP (occurrence: JP)
  Receive Date: 20240318
  Receipt Date: 20240318
  Transmission Date: 20240410
  Serious: Yes (Hospitalization, Other)
  Sender: FDA-Public Use
  Company Number: JP-862174955-ML2024-01647

PATIENT
  Age: 19 Year
  Sex: Female

DRUGS (12)
  1. CAFFEINE CITRATE [Suspect]
     Active Substance: CAFFEINE CITRATE
     Indication: Suicide attempt
  2. ESCITALOPRAM [Suspect]
     Active Substance: ESCITALOPRAM OXALATE
     Indication: Eating disorder
  3. ESCITALOPRAM [Suspect]
     Active Substance: ESCITALOPRAM OXALATE
     Indication: Depression
  4. DEXTROMETHORPHAN [Suspect]
     Active Substance: DEXTROMETHORPHAN
     Indication: Suicide attempt
     Dosage: OVER THE PRECEDING 6 MONTHS, SHE CONSUMED 500 TO 1000 MG OF DXM INTERMITTENTLY
  5. DEXTROMETHORPHAN [Suspect]
     Active Substance: DEXTROMETHORPHAN
  6. IBUPROFEN [Suspect]
     Active Substance: IBUPROFEN
     Indication: Suicide attempt
  7. ACETAMINOPHEN [Suspect]
     Active Substance: ACETAMINOPHEN
     Indication: Suicide attempt
  8. DIHYDROCODEINE PHOSPHATE [Suspect]
     Active Substance: DIHYDROCODEINE PHOSPHATE
     Indication: Suicide attempt
  9. METHYLEPHEDRINE [Suspect]
     Active Substance: METHYLEPHEDRINE
     Indication: Suicide attempt
  10. CHLORPHENIRAMINE MALEATE [Suspect]
     Active Substance: CHLORPHENIRAMINE MALEATE
     Indication: Suicide attempt
  11. LITHIUM [Suspect]
     Active Substance: LITHIUM
     Indication: Depression
  12. LITHIUM [Suspect]
     Active Substance: LITHIUM
     Indication: Eating disorder

REACTIONS (6)
  - Toxic encephalopathy [Recovered/Resolved]
  - Catatonia [Recovered/Resolved]
  - Waxy flexibility [Recovered/Resolved]
  - Echolalia [Recovered/Resolved]
  - Suicide attempt [Unknown]
  - Intentional overdose [Unknown]
